FAERS Safety Report 12465853 (Version 1)
Quarter: 2016Q2

REPORT INFORMATION
  Report Type: Spontaneous
  Country: FI (occurrence: FI)
  Receive Date: 20160614
  Receipt Date: 20160614
  Transmission Date: 20160815
  Serious: Yes (Disabling)
  Sender: FDA-Public Use
  Company Number: FI-JNJFOC-20160608723

PATIENT
  Age: 73 Year
  Sex: Female

DRUGS (10)
  1. RISPERDAL CONSTA [Suspect]
     Active Substance: RISPERIDONE
     Indication: PRODUCT USED FOR UNKNOWN INDICATION
     Dosage: FREQUENCY: EVERY OTHER WEEK
     Route: 030
     Dates: start: 20151210, end: 20160122
  2. PRIMASPAN [Concomitant]
     Active Substance: ASPIRIN
     Dosage: STARTED YEARS AGO
     Route: 048
  3. METFORMIN [Concomitant]
     Active Substance: METFORMIN HYDROCHLORIDE
     Dosage: STARTED YEARS AGO
     Route: 048
  4. RISPERIDONE. [Suspect]
     Active Substance: RISPERIDONE
     Indication: PRODUCT USED FOR UNKNOWN INDICATION
     Dosage: DAILY DOSE: 4 MG
     Route: 048
     Dates: start: 201511, end: 2015
  5. ORMOX [Concomitant]
     Dosage: STARTED YEARS AGO
     Route: 048
  6. AMLODIPINE [Concomitant]
     Active Substance: AMLODIPINE BESYLATE
     Dosage: STARTED YEARS AGO
     Route: 048
  7. LOSARTAN. [Concomitant]
     Active Substance: LOSARTAN
     Route: 065
  8. LOSARTAN. [Concomitant]
     Active Substance: LOSARTAN
     Route: 065
     Dates: start: 201511
  9. ORLOC [Concomitant]
     Active Substance: BISOPROLOL FUMARATE
     Dosage: STARTED YEARS AGO
     Route: 048
  10. ATORVASTATIN [Concomitant]
     Active Substance: ATORVASTATIN
     Dosage: STARTED YEARS AGO
     Route: 048

REACTIONS (8)
  - Parkinsonism [Unknown]
  - Muscular weakness [Unknown]
  - Depression [Unknown]
  - Memory impairment [Not Recovered/Not Resolved]
  - Weight decreased [Unknown]
  - Apathy [Unknown]
  - Affect lability [Unknown]
  - Insomnia [Unknown]

NARRATIVE: CASE EVENT DATE: 201512
